FAERS Safety Report 20811014 (Version 2)
Quarter: 2022Q2

REPORT INFORMATION
  Report Type: Spontaneous
  Country: SI (occurrence: SI)
  Receive Date: 20220510
  Receipt Date: 20220512
  Transmission Date: 20220720
  Serious: Yes (Hospitalization, Other)
  Sender: FDA-Public Use
  Company Number: SI-002147023-NVSC2022SI093252

PATIENT
  Age: 91 Year
  Sex: Female

DRUGS (19)
  1. AMLODIPINE BESYLATE [Suspect]
     Active Substance: AMLODIPINE BESYLATE
     Dosage: 10 MG
     Route: 065
  2. PANTOPRAZOLE [Suspect]
     Active Substance: PANTOPRAZOLE
     Dosage: 40 MG
     Route: 065
  3. ALLOPURINOL [Suspect]
     Active Substance: ALLOPURINOL
     Dosage: 100 MG
     Route: 065
  4. IRON [Suspect]
     Active Substance: IRON
     Dosage: 1 G
     Route: 042
     Dates: start: 202105
  5. INDAPAMIDE\PERINDOPRIL [Suspect]
     Active Substance: INDAPAMIDE\PERINDOPRIL
     Dosage: UNK, 10MG/2.5MG
     Route: 065
     Dates: end: 202102
  6. DICLOFENAC [Suspect]
     Active Substance: DICLOFENAC
     Dosage: UNK
     Route: 065
  7. EPOETIN ALFA [Suspect]
     Active Substance: ERYTHROPOIETIN
     Dosage: 8000 IE, QW
     Route: 058
     Dates: start: 202102
  8. EPOETIN ALFA [Suspect]
     Active Substance: ERYTHROPOIETIN
     Dosage: 5000 IE, QW
     Route: 058
     Dates: start: 202107, end: 202112
  9. EPOETIN ALFA [Suspect]
     Active Substance: ERYTHROPOIETIN
     Dosage: 5000 IE, QW
     Route: 058
     Dates: start: 202204
  10. CHOLECALCIFEROL [Concomitant]
     Active Substance: CHOLECALCIFEROL
     Dosage: 35 GTT DROPS, 1/WEEK
     Route: 065
  11. CHOLECALCIFEROL [Concomitant]
     Active Substance: CHOLECALCIFEROL
     Dosage: UNK
     Route: 065
  12. ISOSORBIDE MONONITRATE [Concomitant]
     Active Substance: ISOSORBIDE MONONITRATE
     Dosage: 40 MG
     Route: 065
  13. CALCIUM CARBONATE [Concomitant]
     Active Substance: CALCIUM CARBONATE
     Dosage: 1 G, 2X/DAY
     Route: 065
     Dates: end: 202102
  14. METOPROLOL [Concomitant]
     Active Substance: METOPROLOL
     Dosage: 25 MG TWICE
     Route: 065
  15. ASPIRIN [Concomitant]
     Active Substance: ASPIRIN
     Dosage: 100 MG
     Route: 065
  16. TORSEMIDE [Concomitant]
     Active Substance: TORSEMIDE
     Dosage: 20 MG
     Route: 065
     Dates: start: 202102
  17. TORSEMIDE [Concomitant]
     Active Substance: TORSEMIDE
     Dosage: 10 MG
     Route: 065
  18. AMLODIPINE BESYLATE\PERINDOPRIL TOSYLATE [Concomitant]
     Active Substance: AMLODIPINE BESYLATE\PERINDOPRIL TOSYLATE
     Dosage: UNK
     Route: 065
     Dates: start: 202102
  19. METHYLPREDNISOLONE [Concomitant]
     Active Substance: METHYLPREDNISOLONE
     Dosage: 4 MG
     Route: 065

REACTIONS (16)
  - Cardiac failure [Unknown]
  - Respiratory tract infection [Unknown]
  - Renal impairment [Unknown]
  - Fall [Unknown]
  - Asthenia [Unknown]
  - Diarrhoea [Unknown]
  - Vomiting [Unknown]
  - Renal failure [Unknown]
  - Glomerular filtration rate abnormal [Unknown]
  - Hyperparathyroidism [Unknown]
  - Cardiorenal syndrome [Unknown]
  - Blood pressure systolic increased [Unknown]
  - Oedema peripheral [Unknown]
  - Hyponatraemia [Unknown]
  - Anaemia [Unknown]
  - Peripheral swelling [Unknown]

NARRATIVE: CASE EVENT DATE: 20210201
